FAERS Safety Report 11626422 (Version 1)
Quarter: 2015Q4

REPORT INFORMATION
  Report Type: Spontaneous
  Country: US (occurrence: US)
  Receive Date: 20151013
  Receipt Date: 20151013
  Transmission Date: 20160304
  Serious: No
  Sender: FDA-Public Use
  Company Number: US-ROCHE-1472317

PATIENT
  Age: 68 Year
  Sex: Male

DRUGS (1)
  1. ZELBORAF [Suspect]
     Active Substance: VEMURAFENIB
     Indication: METASTATIC MALIGNANT MELANOMA
     Route: 065
     Dates: start: 201406

REACTIONS (10)
  - Headache [Not Recovered/Not Resolved]
  - Blood bilirubin increased [Unknown]
  - Aspartate aminotransferase increased [Unknown]
  - Gait disturbance [Not Recovered/Not Resolved]
  - Alanine aminotransferase increased [Unknown]
  - Tremor [Not Recovered/Not Resolved]
  - Sunburn [Recovered/Resolved]
  - Eye swelling [Recovered/Resolved]
  - Confusional state [Not Recovered/Not Resolved]
  - Skin lesion [Unknown]

NARRATIVE: CASE EVENT DATE: 20141004
